FAERS Safety Report 4576594-2 (Version None)
Quarter: 2005Q1

REPORT INFORMATION
  Report Type: 
  Country: None (occurrence: None)
  Receive Date: 20050119
  Receipt Date: 20040921
  Transmission Date: 20050727
  Serious: Yes (Death, Hospitalization)
  Sender: FDA-Public Use
  Company Number: A03200403235

PATIENT
  Age: 69 Year
  Sex: Female
  Weight: 81.1939 kg

DRUGS (12)
  1. PLAVIX [Suspect]
     Indication: CEREBROVASCULAR ACCIDENT PROPHYLAXIS
     Dosage: 75 MG QD - ORAL
     Route: 048
     Dates: start: 20020718, end: 20040429
  2. PLAVIX [Suspect]
     Indication: MYOCARDIAL INFARCTION
     Dosage: 75 MG QD - ORAL
     Route: 048
     Dates: start: 20020718, end: 20040429
  3. GLIPIZIDE [Concomitant]
  4. METFORMIN HCL [Concomitant]
  5. WARFARIN SODIUM [Concomitant]
  6. ATENOLOL [Concomitant]
  7. DISOPYRAMIDE PHOSPHATE [Concomitant]
  8. CLONIDINE [Concomitant]
  9. SERTRALINE HYDROCHLORIDE [Concomitant]
  10. FLUOXETINE HYDROCHLORIDE [Concomitant]
  11. PHENYTOIN SODIUM [Concomitant]
  12. QUETIAPINE FUMARATE [Concomitant]

REACTIONS (1)
  - SUBDURAL HAEMORRHAGE [None]
